FAERS Safety Report 8501395-X (Version None)
Quarter: 2012Q3

REPORT INFORMATION
  Report Type: 
  Country: None (occurrence: None)
  Receive Date: 20120710
  Receipt Date: 20120702
  Transmission Date: 20120928
  Serious: Yes (Other)
  Sender: FDA-Public Use
  Company Number: US-MYLANLABS-2012S1013341

PATIENT
  Age: 31 Year
  Sex: Female

DRUGS (2)
  1. AMNESTEEM [Suspect]
     Route: 048
     Dates: start: 20120529, end: 20120627
  2. CONTRACEPTIVE [Concomitant]
     Route: 062

REACTIONS (2)
  - BLOOD CHOLESTEROL INCREASED [None]
  - MATERNAL EXPOSURE DURING PREGNANCY [None]
